FAERS Safety Report 7658839-5 (Version None)
Quarter: 2011Q3

REPORT INFORMATION
  Report Type: 
  Country: None (occurrence: None)
  Receive Date: 20110805
  Receipt Date: 20110728
  Transmission Date: 20111222
  Serious: Yes (Other)
  Sender: FDA-Public Use
  Company Number: US-JNJFOC-20110800966

PATIENT
  Sex: Male
  Weight: 81.65 kg

DRUGS (6)
  1. INVEGA [Suspect]
     Route: 048
  2. INVEGA [Suspect]
     Indication: ANXIETY
     Route: 048
  3. INVEGA [Suspect]
     Route: 048
  4. TEMAZEPAM [Concomitant]
     Indication: SLEEP DISORDER
     Route: 048
     Dates: start: 20080101
  5. DEPAKOTE [Concomitant]
     Indication: ANXIETY
     Route: 048
     Dates: start: 20090101
  6. INVEGA [Suspect]
     Route: 048

REACTIONS (9)
  - UPPER LIMB FRACTURE [None]
  - DIARRHOEA [None]
  - DRUG INEFFECTIVE [None]
  - OFF LABEL USE [None]
  - ANXIETY [None]
  - WRONG TECHNIQUE IN DRUG USAGE PROCESS [None]
  - BLUNTED AFFECT [None]
  - SEXUAL DYSFUNCTION [None]
  - GASTRITIS [None]
